FAERS Safety Report 14305630 (Version 3)
Quarter: 2018Q1

REPORT INFORMATION
  Report Type: Spontaneous
  Country: FR (occurrence: FR)
  Receive Date: 20171219
  Receipt Date: 20180308
  Transmission Date: 20180509
  Serious: Yes (Other)
  Sender: FDA-Public Use
  Company Number: FR-OTSUKA-2017_022864

PATIENT
  Age: 30 Year
  Sex: Male

DRUGS (4)
  1. ABILIFY [Suspect]
     Active Substance: ARIPIPRAZOLE
     Dosage: 10 MG, QD
     Route: 048
     Dates: start: 20171001, end: 20171018
  2. ABILIFY [Suspect]
     Active Substance: ARIPIPRAZOLE
     Indication: DELIRIUM
     Dosage: 5 MG, UNK
     Route: 048
     Dates: start: 20171001, end: 20171018
  3. XANAX [Suspect]
     Active Substance: ALPRAZOLAM
     Indication: PRODUCT USED FOR UNKNOWN INDICATION
     Dosage: 0.25 MG, TID (0.75MG - DAILY DOSE)
     Route: 048
  4. ABILIFY [Suspect]
     Active Substance: ARIPIPRAZOLE
     Indication: DEPRESSION
     Dosage: 5 MG, QD
     Route: 048
     Dates: start: 20171008

REACTIONS (4)
  - Product use in unapproved indication [Unknown]
  - Bladder dilatation [Unknown]
  - Dysuria [Unknown]
  - Dysphagia [Unknown]

NARRATIVE: CASE EVENT DATE: 20171016
